FAERS Safety Report 21054707 (Version 2)
Quarter: 2022Q3

REPORT INFORMATION
  Report Type: Other
  Country: JP (occurrence: JP)
  Receive Date: 20220707
  Receipt Date: 20220709
  Transmission Date: 20221026
  Serious: Yes (Other)
  Sender: FDA-Public Use
  Company Number: JP-CHUGAI-2022025530AA

PATIENT
  Age: 50 Year
  Sex: Female

DRUGS (3)
  1. HERCEPTIN [Suspect]
     Active Substance: TRASTUZUMAB
     Indication: Squamous cell breast carcinoma
     Route: 041
  2. PERJETA [Suspect]
     Active Substance: PERTUZUMAB
     Indication: Squamous cell breast carcinoma
     Dosage: UNK
     Route: 041
  3. ERIBULIN [Concomitant]
     Active Substance: ERIBULIN
     Indication: Squamous cell breast carcinoma
     Dosage: UNK
     Route: 041

REACTIONS (1)
  - Aneurysm ruptured [Unknown]
